FAERS Safety Report 15493022 (Version 1)
Quarter: 2018Q4

REPORT INFORMATION
  Report Type: Spontaneous
  Country: US (occurrence: US)
  Receive Date: 20181004
  Receipt Date: 20181004
  Transmission Date: 20190205
  Serious: Yes (Other)
  Sender: FDA-Public Use
  Company Number: None

PATIENT
  Age: 77 Year
  Sex: Female
  Weight: 61.65 kg

DRUGS (2)
  1. VALSARTAN. [Concomitant]
     Active Substance: VALSARTAN
  2. VALSARTAN. [Suspect]
     Active Substance: VALSARTAN
     Indication: HYPERTENSION
     Route: 048
     Dates: start: 20160802, end: 20180717

REACTIONS (7)
  - Increased viscosity of upper respiratory secretion [None]
  - Hypersensitivity [None]
  - Toothache [None]
  - Ear pain [None]
  - Eye pain [None]
  - Oropharyngeal pain [None]
  - Therapeutic product ineffective [None]

NARRATIVE: CASE EVENT DATE: 20181001
